FAERS Safety Report 12504538 (Version 10)
Quarter: 2017Q3

REPORT INFORMATION
  Report Type: Spontaneous
  Country: US (occurrence: US)
  Receive Date: 20160628
  Receipt Date: 20170801
  Transmission Date: 20171127
  Serious: Yes (Other)
  Sender: FDA-Public Use
  Company Number: PHHY2016US088126

PATIENT
  Sex: Female
  Weight: 63.49 kg

DRUGS (2)
  1. ZOFRAN [Suspect]
     Active Substance: ONDANSETRON HYDROCHLORIDE
     Indication: VOMITING IN PREGNANCY
     Dosage: 4 MG, UNK
     Route: 065
     Dates: start: 200707, end: 200802
  2. ZOFRAN ODT [Suspect]
     Active Substance: ONDANSETRON HYDROCHLORIDE
     Indication: VOMITING IN PREGNANCY
     Dosage: 4 MG, UNK
     Route: 048
     Dates: start: 200707, end: 200802

REACTIONS (11)
  - Complication of pregnancy [Unknown]
  - Maternal exposure during pregnancy [Unknown]
  - Haemorrhoids [Unknown]
  - Depression [Unknown]
  - Normal newborn [Unknown]
  - Glucose tolerance impaired [Unknown]
  - Injury [Unknown]
  - Product use in unapproved indication [Unknown]
  - Pain [Unknown]
  - Emotional distress [Unknown]
  - Cardiovascular disorder [Unknown]
